FAERS Safety Report 8307427-6 (Version None)
Quarter: 2012Q1

REPORT INFORMATION
  Report Type: 
  Country: None (occurrence: None)
  Receive Date: 20120327
  Receipt Date: 20090728
  Transmission Date: 20120608
  Serious: Yes (Other)
  Sender: FDA-Public Use
  Company Number: PHEH2009US07442

PATIENT
  Age: 78 Year
  Sex: Female
  Weight: 1 kg

DRUGS (3)
  1. GLEEVEC [Suspect]
     Indication: CHRONIC MYELOID LEUKAEMIA
     Dosage: 400 MG, QD, ORAL ; 100 MG, QD, ORAL ; 200 MG, QD, ORAL ; 300 MG, QD, ORAL ; 400 MG, QD, ORAL
     Route: 048
     Dates: start: 20080901
  2. GLEEVEC [Suspect]
     Indication: CHRONIC MYELOID LEUKAEMIA
     Dosage: 400 MG, QD, ORAL ; 100 MG, QD, ORAL ; 200 MG, QD, ORAL ; 300 MG, QD, ORAL ; 400 MG, QD, ORAL
     Route: 048
     Dates: end: 20090701
  3. GLEEVEC [Suspect]
     Indication: CHRONIC MYELOID LEUKAEMIA
     Dosage: 400 MG, QD, ORAL ; 100 MG, QD, ORAL ; 200 MG, QD, ORAL ; 300 MG, QD, ORAL ; 400 MG, QD, ORAL
     Route: 048
     Dates: start: 20090701

REACTIONS (6)
  - OEDEMA PERIPHERAL [None]
  - JOINT SWELLING [None]
  - PERIORBITAL OEDEMA [None]
  - ABDOMINAL PAIN UPPER [None]
  - BLOOD COUNT ABNORMAL [None]
  - ANAEMIA [None]
